FAERS Safety Report 9010399 (Version 3)
Quarter: 2013Q2

REPORT INFORMATION
  Report Type: Spontaneous
  Country: US (occurrence: US)
  Receive Date: 20130109
  Receipt Date: 20130627
  Transmission Date: 20140414
  Serious: Yes (Hospitalization, Other)
  Sender: FDA-Public Use
  Company Number: US-009507513-1301USA002893

PATIENT
  Age: 68 Year
  Sex: Male
  Weight: 106.58 kg

DRUGS (19)
  1. JANUVIA [Suspect]
     Indication: DIABETES MELLITUS
     Dosage: 100 MG, QD
     Route: 048
     Dates: start: 20111201, end: 20111229
  2. JANUVIA [Suspect]
     Dosage: 100 MG, QD
     Route: 048
     Dates: start: 20120423, end: 20120702
  3. JANUVIA [Suspect]
     Dosage: 50 MG, BID
     Route: 048
     Dates: start: 20120702, end: 20130309
  4. METHADONE HYDROCHLORIDE [Concomitant]
  5. OXYCODONE [Concomitant]
  6. CRESTOR [Concomitant]
  7. PRINIVIL [Suspect]
     Dosage: UNK
     Dates: end: 201206
  8. ONGLYZA [Suspect]
     Indication: DIABETES MELLITUS
     Dosage: UNK
     Dates: start: 20111229, end: 201201
  9. JANUMET [Suspect]
     Indication: DIABETES MELLITUS
     Dosage: UNK, BID
     Route: 048
     Dates: start: 20120131, end: 20120423
  10. LASIX (FUROSEMIDE) [Suspect]
     Dosage: UNK
     Dates: end: 201206
  11. GLUCOTROL [Concomitant]
  12. CARVEDILOL [Concomitant]
  13. AMLODIPINE [Concomitant]
  14. PERCOCET [Concomitant]
  15. ASPIRIN [Concomitant]
  16. OMEGA-3 MARINE TRIGLYCERIDES [Concomitant]
  17. UBIDECARENONE [Concomitant]
  18. AMBIEN [Suspect]
  19. XANAX [Suspect]

REACTIONS (30)
  - Acute sinusitis [Not Recovered/Not Resolved]
  - Feeling abnormal [Not Recovered/Not Resolved]
  - Fatigue [Not Recovered/Not Resolved]
  - Abdominal discomfort [Not Recovered/Not Resolved]
  - Wrong technique in drug usage process [Unknown]
  - Blood creatinine increased [Unknown]
  - Gastrointestinal disorder [Unknown]
  - Night sweats [Not Recovered/Not Resolved]
  - Renal failure [Unknown]
  - Electrocardiogram abnormal [Unknown]
  - Renal failure acute [Recovering/Resolving]
  - Seborrhoeic dermatitis [Unknown]
  - Viral infection [Not Recovered/Not Resolved]
  - Pancytopenia [Recovering/Resolving]
  - Hypertension [Unknown]
  - Constipation [Unknown]
  - Restless legs syndrome [Unknown]
  - Abdominal pain [Unknown]
  - Sleep disorder [Not Recovered/Not Resolved]
  - Mental status changes [Recovered/Resolved]
  - Splenomegaly [Unknown]
  - Carotid artery occlusion [Unknown]
  - Carotid endarterectomy [Unknown]
  - Surgery [Unknown]
  - Respiratory disorder [Unknown]
  - Leukopenia [Recovering/Resolving]
  - Blood glucose abnormal [Not Recovered/Not Resolved]
  - Upper respiratory tract infection [Not Recovered/Not Resolved]
  - Sinus disorder [Not Recovered/Not Resolved]
  - Dysphagia [Not Recovered/Not Resolved]
